FAERS Safety Report 9830298 (Version 3)
Quarter: 2014Q1

REPORT INFORMATION
  Report Type: Spontaneous
  Country: US (occurrence: US)
  Receive Date: 20140120
  Receipt Date: 20140310
  Transmission Date: 20141002
  Serious: Yes (Hospitalization, Other)
  Sender: FDA-Public Use
  Company Number: US-BAXTER-2014BAX001423

PATIENT
  Age: 34 Year
  Sex: Female

DRUGS (2)
  1. DIANEAL LOW CALCIUM [Suspect]
     Indication: PERITONEAL DIALYSIS
     Route: 033
     Dates: start: 2011
  2. DIANEAL LOW CALCIUM [Suspect]
     Indication: PERITONEAL DIALYSIS
     Route: 033
     Dates: start: 2011

REACTIONS (5)
  - Cystitis bacterial [Unknown]
  - Bacterial test [Unknown]
  - Peritonitis bacterial [Recovering/Resolving]
  - Inguinal hernia [Not Recovered/Not Resolved]
  - Nasopharyngitis [Recovering/Resolving]
